FAERS Safety Report 6173185-7 (Version None)
Quarter: 2009Q2

REPORT INFORMATION
  Report Type: 
  Country: None (occurrence: None)
  Receive Date: 20090430
  Receipt Date: 20090421
  Transmission Date: 20091009
  Serious: Yes (Other)
  Sender: FDA-Public Use
  Company Number: JP-PFIZER INC-2009199538

PATIENT

DRUGS (5)
  1. AZITHROMYCIN [Suspect]
     Dosage: UNK
     Dates: start: 20090412, end: 20090412
  2. HISTAMINE [Concomitant]
     Route: 048
  3. EPINASTINE HYDROCHLORIDE [Concomitant]
  4. MEQUITAZINE [Concomitant]
  5. OMEPRAZOLE [Concomitant]

REACTIONS (4)
  - ABNORMAL BEHAVIOUR [None]
  - DIARRHOEA [None]
  - DISORIENTATION [None]
  - SOMNOLENCE [None]
